FAERS Safety Report 9854989 (Version 1)
Quarter: 2014Q1

REPORT INFORMATION
  Report Type: Spontaneous
  Country: US (occurrence: US)
  Receive Date: 20140130
  Receipt Date: 20140130
  Transmission Date: 20141002
  Serious: No
  Sender: FDA-Public Use
  Company Number: US-BAYER-2014-013949

PATIENT
  Age: 38 Year
  Sex: Female

DRUGS (1)
  1. DROSPIRENONE + ETHINYLESTRADIOL 30?G [Suspect]
     Indication: ORAL CONTRACEPTION
     Dosage: UNK
     Route: 048
     Dates: end: 2012

REACTIONS (3)
  - Blood copper increased [Recovered/Resolved]
  - C-reactive protein increased [Recovered/Resolved]
  - Ceruloplasmin increased [Recovered/Resolved]
